FAERS Safety Report 7255952-1 (Version None)
Quarter: 2011Q1

REPORT INFORMATION
  Report Type: 
  Country: None (occurrence: None)
  Receive Date: 20110129
  Receipt Date: 20100525
  Transmission Date: 20110831
  Serious: Yes (Hospitalization)
  Sender: FDA-Public Use
  Company Number: US-ABBOTT-10P-163-0645685-00

PATIENT
  Sex: Female
  Weight: 176.61 kg

DRUGS (15)
  1. NITROGLYCERIN [Concomitant]
     Indication: CARDIAC FAILURE CONGESTIVE
     Route: 048
  2. LASIX [Concomitant]
     Indication: CARDIAC FAILURE CONGESTIVE
  3. RISPERDAL [Concomitant]
     Indication: DEPRESSION
  4. HUMIRA [Suspect]
     Route: 058
     Dates: start: 20100517
  5. TERAZOSIN HCL [Concomitant]
     Indication: HYPERTENSION
  6. CLONAZEPAM [Concomitant]
     Indication: ANXIETY
  7. ASPIRIN [Concomitant]
     Indication: PRODUCT USED FOR UNKNOWN INDICATION
  8. PRAVACHOL [Concomitant]
     Indication: BLOOD CHOLESTEROL INCREASED
  9. HUMIRA [Suspect]
     Indication: PSORIASIS
     Route: 058
     Dates: start: 20070501
  10. TAZTIA [Concomitant]
     Indication: HYPERTENSION
  11. RISPERDAL [Concomitant]
     Indication: ANXIETY
  12. FLUOXETINE [Concomitant]
     Indication: DEPRESSION
  13. SINGULAIR [Concomitant]
     Indication: CHRONIC OBSTRUCTIVE PULMONARY DISEASE
  14. BLADDER PILL [Concomitant]
     Indication: PRODUCT USED FOR UNKNOWN INDICATION
  15. POTASSIUM [Concomitant]
     Indication: PRODUCT USED FOR UNKNOWN INDICATION

REACTIONS (4)
  - IMPETIGO [None]
  - SKIN CANDIDA [None]
  - PSORIASIS [None]
  - BRONCHITIS [None]
